FAERS Safety Report 25135669 (Version 2)
Quarter: 2025Q2

REPORT INFORMATION
  Report Type: Spontaneous
  Country: DE (occurrence: DE)
  Receive Date: 20250328
  Receipt Date: 20250506
  Transmission Date: 20250716
  Serious: Yes (Death)
  Sender: ASTELLAS
  Company Number: DE-ASTELLAS-2025-AER-017740

PATIENT
  Sex: Male

DRUGS (1)
  1. XTANDI [Suspect]
     Active Substance: ENZALUTAMIDE
     Indication: Hormone-dependent prostate cancer
     Dosage: 40 MG 4-0-0
     Route: 048
     Dates: start: 20241216, end: 20250301

REACTIONS (1)
  - Sudden cardiac death [Fatal]

NARRATIVE: CASE EVENT DATE: 20250301
